FAERS Safety Report 10599267 (Version 1)
Quarter: 2014Q4

REPORT INFORMATION
  Report Type: Report from Study
  Country: US (occurrence: US)
  Receive Date: 20141121
  Receipt Date: 20141121
  Transmission Date: 20150529
  Serious: No
  Sender: FDA-Public Use
  Company Number: US-GLAXOSMITHKLINE-US2014GSK025035

PATIENT
  Sex: Female

DRUGS (8)
  1. BLINDED FLUTICASONE PROPIONATE [Suspect]
     Active Substance: FLUTICASONE PROPIONATE
     Indication: ASTHMA
     Dosage: 60 DF, UNK
     Route: 055
     Dates: start: 20140509, end: 20140526
  2. BLINDED FLUTICASONE PROPIONATE+SALMETEROL XINAFOATE [Suspect]
     Active Substance: FLUTICASONE PROPIONATE\SALMETEROL XINAFOATE
     Indication: ASTHMA
     Dosage: 60 DF, UNK
     Route: 055
     Dates: start: 20140509, end: 20140526
  3. BLINDED SALBUTAMOL SULPHATE [Suspect]
     Active Substance: ALBUTEROL SULFATE
     Indication: ASTHMA
     Dosage: 60 DF, UNK
     Route: 055
     Dates: start: 20140509, end: 20140526
  4. MEDROL DOSE PACK [Concomitant]
     Active Substance: METHYLPREDNISOLONE
     Dosage: 4 MG, UNK
     Route: 048
     Dates: start: 20140527, end: 20140531
  5. BLINDED FLUTICASONE PROPIONATE+SALMETEROL XINAFOATE [Suspect]
     Active Substance: FLUTICASONE PROPIONATE\SALMETEROL XINAFOATE
     Indication: ASTHMA
     Dosage: 60 DF, UNK
     Route: 055
     Dates: start: 20140509, end: 20140526
  6. ADVAIR DISKUS [Concomitant]
     Active Substance: FLUTICASONE PROPIONATE\SALMETEROL XINAFOATE
     Indication: ASTHMA
     Dosage: 60 DF, QD
     Dates: start: 20140528
  7. BLINDED FLUTICASONE PROPIONATE+SALMETEROL XINAFOATE [Suspect]
     Active Substance: FLUTICASONE PROPIONATE\SALMETEROL XINAFOATE
     Indication: ASTHMA
     Dosage: 60 DF, UNK
     Route: 055
     Dates: start: 20140509, end: 20140526
  8. ZITHROMAX [Concomitant]
     Active Substance: AZITHROMYCIN DIHYDRATE
     Dosage: 250 DF, QD
     Route: 048
     Dates: start: 20140609, end: 20140613

REACTIONS (1)
  - Exposure during pregnancy [Unknown]
